FAERS Safety Report 5536233-0 (Version None)
Quarter: 2007Q4

REPORT INFORMATION
  Report Type: 
  Country: None (occurrence: None)
  Receive Date: 20071206
  Receipt Date: 20071129
  Transmission Date: 20080405
  Serious: Yes (Hospitalization, Other)
  Sender: FDA-Public Use
  Company Number: US-PFIZER INC-2007081803

PATIENT
  Age: 18 Year
  Sex: Female
  Weight: 50.3 kg

DRUGS (2)
  1. CAMPTOSAR [Suspect]
  2. TEMOZOLOMIDE [Suspect]
     Route: 048

REACTIONS (1)
  - MYOCLONUS [None]
